FAERS Safety Report 21845014 (Version 1)
Quarter: 2023Q1

REPORT INFORMATION
  Report Type: Report from Study
  Country: US (occurrence: US)
  Receive Date: 20230110
  Receipt Date: 20230110
  Transmission Date: 20230418
  Serious: No
  Sender: FDA-Public Use
  Company Number: US-ABBVIE-4231533

PATIENT
  Sex: Female

DRUGS (8)
  1. DUOPA [Suspect]
     Active Substance: CARBIDOPA\LEVODOPA
     Indication: Product used for unknown indication
     Route: 050
     Dates: start: 20201027
  2. DUOPA [Suspect]
     Active Substance: CARBIDOPA\LEVODOPA
  3. BETAINE CITRATE [Concomitant]
     Active Substance: BETAINE CITRATE
     Indication: Product used for unknown indication
     Dosage: FORM STRENGTH 315 MILLIGRAM
     Route: 048
  4. NEUPRO [Concomitant]
     Active Substance: ROTIGOTINE
     Indication: Product used for unknown indication
     Dosage: FORM STRENGTH 1 MILLIGRAM
     Route: 048
  5. FAMOTIDINE [Concomitant]
     Active Substance: FAMOTIDINE
     Indication: Product used for unknown indication
     Dosage: FORM STRENGTH 20 MILLIGRAM
     Route: 048
  6. COENZYME Q10 [Concomitant]
     Active Substance: DIETARY SUPPLEMENT\UBIDECARENONE
     Indication: Product used for unknown indication
     Dosage: FORM STRENGTH 100 MLIIGRAM
     Route: 048
  7. VITAMIN B12 [Concomitant]
     Active Substance: CYANOCOBALAMIN
     Indication: Product used for unknown indication
     Dosage: FORM STRENGTH 100 MICROGRAM
     Route: 048
  8. TRAZODONE [Concomitant]
     Active Substance: TRAZODONE HYDROCHLORIDE
     Indication: Product used for unknown indication
     Dosage: FORM STRENGTH 100 MILLIGRAM
     Route: 048

REACTIONS (1)
  - Dyskinesia [Unknown]
